FAERS Safety Report 22154685 (Version 1)
Quarter: 2023Q1

REPORT INFORMATION
  Report Type: Spontaneous
  Country: CN (occurrence: CN)
  Receive Date: 20230330
  Receipt Date: 20230330
  Transmission Date: 20230418
  Serious: Yes (Other)
  Sender: FDA-Public Use
  Company Number: None

PATIENT
  Age: 59 Year
  Sex: Female
  Weight: 55.5 kg

DRUGS (14)
  1. CYCLOPHOSPHAMIDE [Suspect]
     Active Substance: CYCLOPHOSPHAMIDE
     Indication: Invasive breast carcinoma
     Dosage: 800 MG, QD DILUTED WITH 100 ML 0.9% SODIUM CHLORIDE (START TIME: 08:54)
     Route: 041
     Dates: start: 20230316, end: 20230316
  2. CYCLOPHOSPHAMIDE [Suspect]
     Active Substance: CYCLOPHOSPHAMIDE
     Indication: Chemotherapy
  3. SODIUM CHLORIDE [Suspect]
     Active Substance: SODIUM CHLORIDE
     Indication: Medication dilution
     Dosage: 100 ML, QD, 0.9% INJECTION USED TO DILUTE 135 MG EPIRUBICIN (START TIME: 08:54)
     Route: 041
     Dates: start: 20230316, end: 20230316
  4. SODIUM CHLORIDE [Suspect]
     Active Substance: SODIUM CHLORIDE
     Dosage: 100 ML, 0.9% INJECTION USED TO DILUTE 40 MG OMEPRAZOLE SODIUM (START TIME: 08:25)
     Route: 065
     Dates: start: 20230316
  5. SODIUM CHLORIDE [Suspect]
     Active Substance: SODIUM CHLORIDE
     Dosage: 5 ML, 0.9% USED TO DILUTE 5 MG TROPISETRON (START TIME: 08:25)
     Route: 065
     Dates: start: 20230316, end: 20230316
  6. SODIUM CHLORIDE [Suspect]
     Active Substance: SODIUM CHLORIDE
     Dosage: 5 ML, 0.9% USED TO DILUTE 5 MG TROPISETRON (AGAIN AFTER CHEMOTHERAPY)
     Route: 065
     Dates: start: 20230316
  7. EPIRUBICIN [Suspect]
     Active Substance: EPIRUBICIN
     Indication: Chemotherapy
     Dosage: 135 MG, QD DILUTED WITH 100 ML 0.9% SODIUM CHLORIDE (START TIME: 08:54)
     Route: 041
     Dates: start: 20230316, end: 20230316
  8. EPIRUBICIN [Suspect]
     Active Substance: EPIRUBICIN
     Indication: Invasive breast carcinoma
  9. SODIUM CHLORIDE [Suspect]
     Active Substance: SODIUM CHLORIDE
     Indication: Chemotherapy
     Dosage: 100 ML, QD, USED TO DILUTE 800 MG CYCLOPHOSPHAMIDE (START TIME: 08:54)
     Route: 041
     Dates: start: 20230316, end: 20230316
  10. SODIUM CHLORIDE [Suspect]
     Active Substance: SODIUM CHLORIDE
     Indication: Invasive breast carcinoma
  11. OMEPRAZOLE SODIUM [Concomitant]
     Active Substance: OMEPRAZOLE SODIUM
     Indication: Prophylaxis
     Dosage: 40 MG, DILUTED WITH 100 ML 0.9% SODIUM CHLORIDE (START TIME: 08:25)
     Route: 065
     Dates: start: 20230316
  12. TROPISETRON [Concomitant]
     Active Substance: TROPISETRON
     Indication: Prophylaxis of nausea and vomiting
     Dosage: 5 MG, DILUTED WITH 5 ML 0.9% SODIUM CHLORIDE (START TIME: 08:25)
     Route: 065
     Dates: start: 20230316, end: 20230316
  13. TROPISETRON [Concomitant]
     Active Substance: TROPISETRON
     Dosage: 5 MG, DILUTED WITH 5 ML 0.9% SODIUM CHLORIDE (AGAIN AFTER CHEMOTHERAPY)
     Route: 065
     Dates: start: 20230316
  14. DEXAMETHASONE [Concomitant]
     Active Substance: DEXAMETHASONE
     Indication: Prophylaxis of nausea and vomiting
     Dosage: 5 MG (START TIME: 08:25)
     Route: 042
     Dates: start: 20230316

REACTIONS (5)
  - White blood cell count decreased [Recovering/Resolving]
  - Neutrophil count decreased [Recovering/Resolving]
  - Gastrointestinal disorder [Recovering/Resolving]
  - Abdominal pain upper [Recovering/Resolving]
  - Nausea [Recovering/Resolving]

NARRATIVE: CASE EVENT DATE: 20230317
